FAERS Safety Report 6146122-9 (Version None)
Quarter: 2009Q2

REPORT INFORMATION
  Report Type: 
  Country: None (occurrence: None)
  Receive Date: 20090407
  Receipt Date: 20081125
  Transmission Date: 20091009
  Serious: Yes (Other)
  Sender: FDA-Public Use
  Company Number: US-NOVOPROD-281809

PATIENT
  Sex: Female
  Weight: 61.224 kg

DRUGS (13)
  1. ACTIVELLA [Suspect]
     Indication: HORMONE THERAPY
     Dosage: UNKNOWN
     Dates: start: 20031230, end: 20050923
  2. PREMPRO [Suspect]
     Indication: MENSTRUATION IRREGULAR
     Dosage: .625/2.5 MG, UNK
     Dates: start: 19980101, end: 20020901
  3. PROVERA [Suspect]
     Indication: HOT FLUSH
     Dosage: 2.5 MG, UNK
     Dates: start: 19770722, end: 19770101
  4. PROVERA [Suspect]
     Dosage: 2.5 MG, UNK
     Dates: start: 19930101, end: 19970901
  5. PREMARIN [Suspect]
     Indication: HORMONE THERAPY
     Dates: start: 19930101, end: 19970901
  6. ESTRACE [Concomitant]
     Indication: HOT FLUSH
     Dosage: 2 MG, UNK
     Dates: start: 19960101, end: 20030101
  7. PROGESTERONE [Concomitant]
     Indication: MENSTRUATION IRREGULAR
     Dates: start: 19740101, end: 19750101
  8. ZEGERID                            /00661201/ [Concomitant]
     Indication: GASTROOESOPHAGEAL REFLUX DISEASE
     Dates: end: 20060101
  9. FOSAMAX [Concomitant]
     Indication: BONE DISORDER
     Dates: start: 20050923
  10. PREVACID [Concomitant]
     Indication: GASTROOESOPHAGEAL REFLUX DISEASE
     Dosage: UNK, UNK
     Dates: start: 20040101, end: 20040101
  11. MACROBID                           /00024401/ [Concomitant]
     Indication: CYSTITIS
  12. BACTRIM [Concomitant]
     Indication: URINARY TRACT INFECTION
  13. CONTRACEPTIVES NOS [Concomitant]
     Indication: CONTRACEPTION
     Route: 048

REACTIONS (1)
  - BREAST CANCER IN SITU [None]
